FAERS Safety Report 5897500-4 (Version None)
Quarter: 2008Q3

REPORT INFORMATION
  Report Type: 
  Country: None (occurrence: None)
  Receive Date: 20080924
  Receipt Date: 20080924
  Transmission Date: 20090109
  Serious: No
  Sender: FDA-Public Use
  Company Number: None

PATIENT
  Age: 20 Year
  Sex: Male

DRUGS (1)
  1. TESTOSTERONE [Suspect]
     Dates: start: 20070820, end: 20070824

REACTIONS (3)
  - CHOLELITHIASIS [None]
  - EOSINOPHILIA [None]
  - HEPATITIS CHOLESTATIC [None]
